FAERS Safety Report 4865102-4 (Version None)
Quarter: 2005Q4

REPORT INFORMATION
  Report Type: 
  Country: None (occurrence: None)
  Receive Date: 20051223
  Receipt Date: 20051030
  Transmission Date: 20060501
  Serious: Yes (Hospitalization)
  Sender: FDA-Public Use
  Company Number: PHEH2005US12060

PATIENT
  Age: 71 Year
  Sex: Male

DRUGS (8)
  1. GLEEVEC [Suspect]
     Indication: CHRONIC MYELOID LEUKAEMIA
     Dosage: 400 MG, QD
     Route: 048
     Dates: start: 20020101, end: 20051001
  2. LIPITOR [Concomitant]
     Dosage: 10 MG, QD
     Route: 048
  3. TENORETIC 100 [Concomitant]
     Dosage: 50 MG, QD
     Route: 048
  4. KLOR-CON [Concomitant]
     Dosage: 20 MEQ, QD
     Route: 048
  5. XALATAN [Concomitant]
     Indication: GLAUCOMA
     Dosage: 1 GTT, QD
     Route: 047
  6. ASPIRIN [Concomitant]
     Route: 048
  7. VITAMIN CAP [Concomitant]
     Route: 048
  8. NORVASC [Concomitant]
     Dosage: 2.5 MG, QD
     Route: 048

REACTIONS (5)
  - ADENOMATOUS POLYPOSIS COLI [None]
  - COLECTOMY [None]
  - COLON CANCER STAGE III [None]
  - COLONOSCOPY ABNORMAL [None]
  - OCCULT BLOOD POSITIVE [None]
